FAERS Safety Report 7508608-1 (Version None)
Quarter: 2011Q2

REPORT INFORMATION
  Report Type: 
  Country: None (occurrence: None)
  Receive Date: 20110527
  Receipt Date: 20110107
  Transmission Date: 20111010
  Serious: No
  Sender: FDA-Public Use
  Company Number: A0906212A

PATIENT
  Age: 44 Year
  Sex: Male
  Weight: 122.5 kg

DRUGS (25)
  1. FERROUS SULFATE TAB [Concomitant]
     Dosage: 325MG PER DAY
  2. CALCIFEROL [Concomitant]
     Dosage: 1.25MG WEEKLY
  3. TOPROL-XL [Concomitant]
     Dosage: 75MG TWICE PER DAY
  4. ZAROXOLYN [Concomitant]
     Dosage: 2.5MG PER DAY
  5. TORSEMIDE [Concomitant]
     Dosage: 10MG TWICE PER DAY
  6. ALBUTEROL SULFATE AUTOHALER [Concomitant]
     Route: 055
  7. ADVAIR DISKUS 100/50 [Concomitant]
  8. PREDNISONE [Concomitant]
     Dosage: 10MG PER DAY
  9. MULTAQ [Concomitant]
     Dosage: 400MG TWICE PER DAY
  10. NAPROXEN [Concomitant]
     Dosage: 375MG PER DAY
  11. NASONEX [Concomitant]
     Dosage: 2SPR PER DAY
     Route: 045
  12. COUMADIN [Concomitant]
  13. FLOLAN [Suspect]
     Indication: PULMONARY ARTERIAL HYPERTENSION
     Dosage: 56NGKM UNKNOWN
     Route: 042
     Dates: start: 20021223
  14. TRACLEER [Concomitant]
     Dosage: 125MG TWICE PER DAY
  15. ALLEGRA [Concomitant]
     Dosage: 180MG PER DAY
  16. FLOLAN [Suspect]
     Indication: PULMONARY ARTERIAL HYPERTENSION
     Route: 042
     Dates: start: 20021223
  17. HYDRALAZINE HCL [Concomitant]
     Dosage: 10MG TWICE PER DAY
  18. BUMEX [Concomitant]
     Dosage: 2MG TWICE PER DAY
  19. LASIX [Concomitant]
     Dosage: 60MG PER DAY
  20. KDUR [Concomitant]
     Dosage: 20MCG PER DAY
  21. PHENERGAN HCL [Concomitant]
     Dosage: 24MG AS REQUIRED
  22. REQUIP [Concomitant]
     Dosage: 1MG PER DAY
     Route: 048
  23. FLUOXETINE [Concomitant]
     Dosage: 10MG IN THE MORNING
  24. RANITIDINE [Concomitant]
     Dosage: 150MG TWICE PER DAY
  25. MULTI-VITAMIN [Concomitant]
     Dosage: 1TAB PER DAY

REACTIONS (2)
  - FLUSHING [None]
  - PAIN IN JAW [None]
